FAERS Safety Report 7260192-6 (Version None)
Quarter: 2011Q1

REPORT INFORMATION
  Report Type: 
  Country: None (occurrence: None)
  Receive Date: 20110130
  Receipt Date: 20101018
  Transmission Date: 20110831
  Serious: No
  Sender: FDA-Public Use
  Company Number: US-ABBOTT-10P-163-0679228-00

PATIENT
  Age: 70 Year
  Sex: Female

DRUGS (2)
  1. GLUCOSAMINE [Concomitant]
     Indication: NECK PAIN
  2. HUMIRA [Suspect]
     Indication: ARTHRITIS
     Dates: start: 20100601

REACTIONS (2)
  - PAPULE [None]
  - PRURITUS [None]
